FAERS Safety Report 14726688 (Version 1)
Quarter: 2018Q2

REPORT INFORMATION
  Report Type: Spontaneous
  Country: HU (occurrence: HU)
  Receive Date: 20180406
  Receipt Date: 20180406
  Transmission Date: 20180711
  Serious: Yes (Life-Threatening, Hospitalization, Other)
  Sender: FDA-Public Use
  Company Number: HU-TEVA-2018-HU-879320

PATIENT
  Age: 39 Year
  Sex: Female
  Weight: 65 kg

DRUGS (13)
  1. AMOXICILLIN. [Suspect]
     Active Substance: AMOXICILLIN
     Indication: PRODUCT USED FOR UNKNOWN INDICATION
     Route: 065
  2. ALEXAN (CYTARABINE) [Suspect]
     Active Substance: CYTARABINE
     Indication: ACUTE MYELOID LEUKAEMIA
     Dosage: 190 MILLIGRAM DAILY; 190 MG, AS INDUCTION THERAPY 7+3, RECEIVED FOR 7 DAYS IN FORM OF 24 HOUR INFUSI
     Dates: start: 201203
  3. ACICLOVIR [Concomitant]
     Active Substance: ACYCLOVIR
     Indication: PRODUCT USED FOR UNKNOWN INDICATION
     Route: 065
  4. MILURIT [Concomitant]
     Active Substance: ALLOPURINOL
     Indication: PRODUCT USED FOR UNKNOWN INDICATION
     Route: 065
  5. ALEXAN (CYTARABINE) [Suspect]
     Active Substance: CYTARABINE
     Dosage: 5.5 GRAM DAILY; 5.5 G, BID
     Dates: start: 201204
  6. FLUDARA [Suspect]
     Active Substance: FLUDARABINE PHOSPHATE
     Indication: ACUTE MYELOID LEUKAEMIA
     Dosage: 50 MG ON DAYS 1-5, FLAG-IDA
     Dates: start: 201401
  7. ALEXAN (CYTARABINE) [Suspect]
     Active Substance: CYTARABINE
     Dosage: 3.4 GRAM DAILY; 3.4 G ON DAYS 1-5, FLAG-IDA
     Dates: start: 201401
  8. ZAVEDOS [Suspect]
     Active Substance: IDARUBICIN
     Indication: ACUTE MYELOID LEUKAEMIA
     Dosage: 14 MG ON DAYS 1-3, FLAG-IDA
     Dates: start: 201401
  9. G-CSF [Suspect]
     Active Substance: GRANULOCYTE COLONY-STIMULATING FACTOR NOS
     Indication: ACUTE MYELOID LEUKAEMIA
     Dosage: FLAG-IDA
     Route: 065
     Dates: start: 201401
  10. DOXORUBICIN [Suspect]
     Active Substance: DOXORUBICIN
     Indication: ACUTE MYELOID LEUKAEMIA
     Dosage: 90 MG, ON DAYS 2. 4., REINDUCTION BISHOP THERAPY
     Route: 065
     Dates: start: 201204
  11. SUMETROLIM [Concomitant]
     Active Substance: SULFAMETHOXAZOLE\TRIMETHOPRIM
     Indication: PRODUCT USED FOR UNKNOWN INDICATION
     Route: 065
  12. DAUNOBLASTIN [Concomitant]
     Active Substance: DAUNORUBICIN HYDROCHLORIDE
     Indication: ACUTE MYELOID LEUKAEMIA
     Dosage: 110 MG, AS INDUCTION THERAPY 7+3, FOR 3 DAYS
     Route: 065
     Dates: start: 201203
  13. ALEXAN (CYTARABINE) [Suspect]
     Active Substance: CYTARABINE
     Dosage: 5.4 GRAM DAILY; 5.4 G, BID
     Dates: start: 201205

REACTIONS (6)
  - Tumour lysis syndrome [Recovered/Resolved]
  - Acute myeloid leukaemia recurrent [Unknown]
  - Pyrexia [Recovered/Resolved]
  - Febrile neutropenia [Recovered/Resolved]
  - Bronchopulmonary aspergillosis [Unknown]
  - Respiratory failure [Recovered/Resolved]

NARRATIVE: CASE EVENT DATE: 20120206
